FAERS Safety Report 9773096 (Version 1)
Quarter: 2013Q4

REPORT INFORMATION
  Report Type: Spontaneous
  Country: US (occurrence: US)
  Receive Date: 20131219
  Receipt Date: 20131219
  Transmission Date: 20140711
  Serious: No
  Sender: FDA-Public Use
  Company Number: US-BAYER-2013-154993

PATIENT
  Age: 75 Year
  Sex: Female
  Weight: 79.37 kg

DRUGS (3)
  1. BAYER EXTRA STRENGTH ASPIRIN [Suspect]
     Indication: PAIN
     Dosage: 2 DF, PRN
     Route: 048
     Dates: start: 201311
  2. ALEVE CAPLET [Suspect]
     Indication: HEADACHE
     Dosage: 1 DF, PRN
     Route: 048
     Dates: start: 201311
  3. DILANTIN [Concomitant]

REACTIONS (2)
  - Drug ineffective [None]
  - Drug ineffective [None]
